FAERS Safety Report 7013621-7 (Version None)
Quarter: 2010Q3

REPORT INFORMATION
  Report Type: 
  Country: None (occurrence: None)
  Receive Date: 20100924
  Receipt Date: 20100916
  Transmission Date: 20110219
  Serious: Yes (Hospitalization)
  Sender: FDA-Public Use
  Company Number: FR-AMGEN-QUU438731

PATIENT
  Age: 86 Year
  Sex: Male
  Weight: 55 kg

DRUGS (2)
  1. ARANESP [Suspect]
     Indication: ANAEMIA
     Route: 058
  2. LUCENTIS [Concomitant]
     Route: 031

REACTIONS (1)
  - EPISTAXIS [None]
